FAERS Safety Report 4892008-7 (Version None)
Quarter: 2006Q1

REPORT INFORMATION
  Report Type: 
  Country: None (occurrence: None)
  Receive Date: 20060123
  Receipt Date: 20060112
  Transmission Date: 20060701
  Serious: Yes (Hospitalization)
  Sender: FDA-Public Use
  Company Number: 2006008127

PATIENT
  Age: 28 Year
  Sex: Female
  Weight: 88 kg

DRUGS (2)
  1. EPIRUBICIN [Suspect]
     Indication: BREAST CANCER
     Dosage: (170 MG)
     Dates: start: 20051121, end: 20060103
  2. TAXOTERE [Suspect]
     Indication: BREAST CANCER
     Dosage: (140 MG)
     Dates: start: 20050919, end: 20060103

REACTIONS (2)
  - CHEST PAIN [None]
  - DYSPNOEA [None]
